FAERS Safety Report 20777092 (Version 2)
Quarter: 2022Q2

REPORT INFORMATION
  Report Type: Spontaneous
  Country: DE (occurrence: DE)
  Receive Date: 20220503
  Receipt Date: 20220519
  Transmission Date: 20220720
  Serious: Yes (Hospitalization, Other)
  Sender: FDA-Public Use
  Company Number: DE-009507513-2112DEU004848

PATIENT
  Age: 79 Year
  Sex: Male
  Weight: 75 kg

DRUGS (2)
  1. KEYTRUDA [Suspect]
     Active Substance: PEMBROLIZUMAB
     Indication: Transitional cell carcinoma
     Dosage: 200 MILLIGRAM, EVERY 3 WEEKS (Q3W)
     Dates: start: 20210114, end: 20220225
  2. KEYTRUDA [Suspect]
     Active Substance: PEMBROLIZUMAB
     Indication: Metastases to lymph nodes

REACTIONS (23)
  - Pulmonary fibrosis [Not Recovered/Not Resolved]
  - Arteriosclerosis coronary artery [Unknown]
  - Coronary artery bypass [Unknown]
  - Pulmonary embolism [Unknown]
  - Mediastinal operation [Unknown]
  - Aortic arteriosclerosis [Unknown]
  - Bronchiectasis [Unknown]
  - Sternotomy [Unknown]
  - Osteochondrosis [Unknown]
  - Autoimmune lung disease [Recovering/Resolving]
  - Costovertebral angle tenderness [Unknown]
  - Emphysema [Unknown]
  - Ectopic kidney [Unknown]
  - Prostatomegaly [Unknown]
  - Diverticulum intestinal [Unknown]
  - Degenerative bone disease [Unknown]
  - Faeces hard [Unknown]
  - Dizziness [Unknown]
  - Obesity [Unknown]
  - Pleural thickening [Unknown]
  - Tracheal calcification [Unknown]
  - Spinal osteoarthritis [Unknown]
  - Constipation [Unknown]

NARRATIVE: CASE EVENT DATE: 20210101
